FAERS Safety Report 4485264-0 (Version None)
Quarter: 2004Q4

REPORT INFORMATION
  Report Type: 
  Country: None (occurrence: None)
  Receive Date: 20041021
  Receipt Date: 20041021
  Transmission Date: 20050328
  Serious: Yes (Disabling)
  Sender: FDA-Public Use
  Company Number: None

PATIENT
  Sex: Male
  Weight: 73 kg

DRUGS (4)
  1. VIOXX [Suspect]
     Indication: BACK PAIN
     Dosage: 25 MG   BY DAY   BUCCAL
     Route: 002
     Dates: start: 20020302, end: 20040315
  2. VIOXX [Suspect]
     Indication: OSTEOARTHRITIS
     Dosage: 25 MG   BY DAY   BUCCAL
     Route: 002
     Dates: start: 20020302, end: 20040315
  3. PIASCLEDINE [Concomitant]
  4. NOCTRAN [Concomitant]

REACTIONS (2)
  - CORONARY ARTERY OCCLUSION [None]
  - DECREASED ACTIVITY [None]
